FAERS Safety Report 7048303-9 (Version None)
Quarter: 2010Q4

REPORT INFORMATION
  Report Type: 
  Country: None (occurrence: None)
  Receive Date: 20101015
  Receipt Date: 20101006
  Transmission Date: 20110411
  Serious: Yes (Other)
  Sender: FDA-Public Use
  Company Number: US-US-EMD SERONO, INC.-7008381

PATIENT
  Sex: Female

DRUGS (8)
  1. REBIF [Suspect]
     Indication: MULTIPLE SCLEROSIS
     Route: 058
     Dates: start: 20100507
  2. ADVIL [Concomitant]
  3. COUMADIN [Concomitant]
     Indication: PULMONARY EMBOLISM
     Dates: start: 20040101
  4. PREDNISONE [Concomitant]
     Indication: PREMEDICATION
  5. PREDNISONE [Concomitant]
     Indication: DRUG THERAPY
  6. NEURONTIN [Concomitant]
     Indication: MULTIPLE SCLEROSIS
  7. NEXIUM [Concomitant]
     Indication: HIATUS HERNIA
     Dates: start: 20040101
  8. LASIX [Concomitant]
     Indication: LYMPHOEDEMA

REACTIONS (11)
  - BALANCE DISORDER [None]
  - GAIT DISTURBANCE [None]
  - HEADACHE [None]
  - HYPERHIDROSIS [None]
  - INJECTION SITE HAEMATOMA [None]
  - LETHARGY [None]
  - LISTLESS [None]
  - MENORRHAGIA [None]
  - NAUSEA [None]
  - POSTMENOPAUSAL HAEMORRHAGE [None]
  - TOOTH EROSION [None]
